FAERS Safety Report 7668119-X (Version None)
Quarter: 2011Q3

REPORT INFORMATION
  Report Type: 
  Country: None (occurrence: None)
  Receive Date: 20110808
  Receipt Date: 20110727
  Transmission Date: 20111222
  Serious: Yes (Life-Threatening, Other)
  Sender: FDA-Public Use
  Company Number: CZ-JNJFOC-20110801820

PATIENT
  Sex: Female
  Weight: 73 kg

DRUGS (1)
  1. NORGESTIMATE AND ETHINYL ESTRADIOL [Suspect]
     Indication: CONTRACEPTION
     Dosage: FOR 6 MONTHS
     Route: 065

REACTIONS (3)
  - PELVIC VENOUS THROMBOSIS [None]
  - OFF LABEL USE [None]
  - DEEP VEIN THROMBOSIS [None]
